FAERS Safety Report 9573172 (Version 1)
Quarter: 2013Q3

REPORT INFORMATION
  Report Type: Spontaneous
  Country: US (occurrence: None)
  Receive Date: 20130930
  Receipt Date: 20130930
  Transmission Date: 20140515
  Serious: Yes (Hospitalization)
  Sender: FDA-Public Use
  Company Number: None

PATIENT
  Age: 65 Year
  Sex: Female
  Weight: 50.35 kg

DRUGS (6)
  1. CLEARLAX [Suspect]
     Indication: BOWEL PREPARATION
     Route: 048
     Dates: start: 20130904
  2. CLEARLAX [Suspect]
     Indication: UROGRAM
     Route: 048
     Dates: start: 20130904
  3. LEVOTHYROXINE [Concomitant]
  4. WARFARIN [Concomitant]
  5. METOPROLOL [Concomitant]
  6. VITAMIN D3 [Concomitant]

REACTIONS (4)
  - Nausea [None]
  - Vomiting [None]
  - Abdominal pain [None]
  - Product formulation issue [None]
